FAERS Safety Report 6696148-1 (Version None)
Quarter: 2010Q2

REPORT INFORMATION
  Report Type: 
  Country: None (occurrence: None)
  Receive Date: 20100426
  Receipt Date: 20100421
  Transmission Date: 20101027
  Serious: Yes (Life-Threatening, Hospitalization)
  Sender: FDA-Public Use
  Company Number: FR-BRISTOL-MYERS SQUIBB COMPANY-15069057

PATIENT
  Age: 75 Year
  Sex: Male

DRUGS (9)
  1. SPRYCEL [Suspect]
     Indication: CHRONIC MYELOID LEUKAEMIA
     Dates: start: 20100215, end: 20100228
  2. PRAVASTATIN SODIUM [Concomitant]
  3. COLCHICINE [Concomitant]
  4. KARDEGIC [Concomitant]
  5. COVERSYL [Concomitant]
  6. ALLOPURINOL [Concomitant]
  7. OMEPRAZOLE [Concomitant]
  8. PROCORALAN [Concomitant]
  9. TENSTATEN [Concomitant]

REACTIONS (2)
  - DYSPNOEA [None]
  - INTERSTITIAL LUNG DISEASE [None]
